FAERS Safety Report 5491621-6 (Version None)
Quarter: 2007Q4

REPORT INFORMATION
  Report Type: 
  Country: None (occurrence: None)
  Receive Date: 20071019
  Receipt Date: 20071019
  Transmission Date: 20080405
  Serious: Yes (Other)
  Sender: FDA-Public Use
  Company Number: None

PATIENT
  Age: 85 Year
  Sex: Male

DRUGS (9)
  1. CEFTRIAXONE [Suspect]
     Dates: start: 20061016, end: 20061019
  2. SYNTHROID [Concomitant]
  3. DIOVAN [Concomitant]
  4. FOSAMAX [Concomitant]
  5. OS-CAL [Concomitant]
  6. PREVACID [Concomitant]
  7. FLOMAX [Concomitant]
  8. AVODART [Concomitant]
  9. TOBRAMYCIN [Concomitant]

REACTIONS (4)
  - CHRONIC HEPATITIS [None]
  - JAUNDICE CHOLESTATIC [None]
  - PANCREATITIS ACUTE [None]
  - WEIGHT DECREASED [None]
